FAERS Safety Report 8427561-X (Version None)
Quarter: 2012Q2

REPORT INFORMATION
  Report Type: 
  Country: None (occurrence: None)
  Receive Date: 20120611
  Receipt Date: 20120531
  Transmission Date: 20120825
  Serious: Yes (Other)
  Sender: FDA-Public Use
  Company Number: IT-ASTRAZENECA-2012SE36089

PATIENT
  Age: 69 Year
  Sex: Male

DRUGS (3)
  1. QUETIAPINE [Suspect]
     Indication: SLEEP DISORDER
     Route: 048
  2. PRAMIPEXOLE [Suspect]
     Indication: PARKINSONISM
     Route: 048
  3. METHIMAZOLE [Concomitant]
     Indication: HYPERTHYROIDISM

REACTIONS (1)
  - PLEUROTHOTONUS [None]
